FAERS Safety Report 5258062-8 (Version None)
Quarter: 2007Q1

REPORT INFORMATION
  Report Type: 
  Country: None (occurrence: None)
  Receive Date: 20070307
  Receipt Date: 20070227
  Transmission Date: 20070707
  Serious: Yes (Life-Threatening, Hospitalization)
  Sender: FDA-Public Use
  Company Number: PL-PFIZER INC-2007003285

PATIENT
  Sex: Male
  Weight: 60 kg

DRUGS (9)
  1. ATORVASTATIN CALCIUM [Suspect]
     Indication: MYOCARDIAL INFARCTION
     Dosage: DAILY DOSE:10MG
     Route: 048
     Dates: start: 20060701, end: 20061116
  2. FLUTAMIDE [Concomitant]
  3. ZOLADEX [Concomitant]
  4. CLEXANE [Concomitant]
  5. PRESTARIUM [Concomitant]
  6. GASEC [Concomitant]
  7. EFFOX LONG [Concomitant]
  8. MORPHINE [Concomitant]
  9. PROXACIN [Concomitant]
     Indication: PNEUMONIA
     Dosage: DAILY DOSE:400MG
     Route: 042

REACTIONS (6)
  - DIALYSIS [None]
  - DRUG INTERACTION [None]
  - PROSTATE CANCER [None]
  - RENAL FAILURE ACUTE [None]
  - RESPIRATORY FAILURE [None]
  - SHOCK [None]
